FAERS Safety Report 5397834-6 (Version None)
Quarter: 2007Q3

REPORT INFORMATION
  Report Type: 
  Country: None (occurrence: None)
  Receive Date: 20070724
  Receipt Date: 20070724
  Transmission Date: 20080115
  Serious: Yes (Other)
  Sender: FDA-Public Use
  Company Number: None

PATIENT
  Age: 53 Year
  Sex: Female
  Weight: 63.05 kg

DRUGS (2)
  1. LUNESTA [Suspect]
     Indication: CHRONIC FATIGUE SYNDROME
     Dosage: 2 MG ONE AT BEDTIME PO
     Route: 048
     Dates: start: 20070720, end: 20070720
  2. LUNESTA [Suspect]
     Indication: SLEEP DISORDER
     Dosage: 2 MG ONE AT BEDTIME PO
     Route: 048
     Dates: start: 20070720, end: 20070720

REACTIONS (7)
  - ABNORMAL BEHAVIOUR [None]
  - ABNORMAL SLEEP-RELATED EVENT [None]
  - AMNESIA [None]
  - BELLIGERENCE [None]
  - FEAR [None]
  - INCOHERENT [None]
  - SCREAMING [None]
